FAERS Safety Report 16173714 (Version 1)
Quarter: 2019Q2

REPORT INFORMATION
  Report Type: Spontaneous
  Country: US (occurrence: US)
  Receive Date: 20190408
  Receipt Date: 20190408
  Transmission Date: 20190711
  Serious: Yes (Hospitalization)
  Sender: FDA-Public Use
  Company Number: None

PATIENT
  Sex: Male

DRUGS (20)
  1. METOPROL SUC [Concomitant]
  2. PRAVASTATIN. [Concomitant]
     Active Substance: PRAVASTATIN
  3. PRESERVISION [Concomitant]
     Active Substance: MINERALS\VITAMINS
  4. XOPENEX HFA [Concomitant]
     Active Substance: LEVALBUTEROL TARTRATE
  5. AMIODARONE [Concomitant]
     Active Substance: AMIODARONE
  6. CLOPIDOGREL [Concomitant]
     Active Substance: CLOPIDOGREL BISULFATE
  7. POTASSIUM CHLOR [Concomitant]
  8. VITAMIN B12 [Concomitant]
     Active Substance: CYANOCOBALAMIN
  9. CITALOPRAM [Concomitant]
     Active Substance: CITALOPRAM HYDROBROMIDE
  10. TUMS [Concomitant]
     Active Substance: CALCIUM CARBONATE
  11. TAMSULOSIN [Concomitant]
     Active Substance: TAMSULOSIN
  12. ERLEADA [Suspect]
     Active Substance: APALUTAMIDE
     Indication: PROSTATE CANCER
     Route: 048
     Dates: start: 20190320
  13. FLUTICASONE. [Concomitant]
     Active Substance: FLUTICASONE
  14. LEVOTHYROXIN [Concomitant]
     Active Substance: LEVOTHYROXINE
  15. LOSARTAN POT [Concomitant]
     Active Substance: LOSARTAN POTASSIUM
  16. VITAMIN D3 [Concomitant]
     Active Substance: CHOLECALCIFEROL
  17. LASIX [Concomitant]
     Active Substance: FUROSEMIDE
  18. ASPIRIN. [Concomitant]
     Active Substance: ASPIRIN
  19. LACTULOSE. [Concomitant]
     Active Substance: LACTULOSE
  20. RANITIDINE. [Concomitant]
     Active Substance: RANITIDINE

REACTIONS (1)
  - Groin pain [None]
